FAERS Safety Report 6257656-0 (Version None)
Quarter: 2009Q3

REPORT INFORMATION
  Report Type: 
  Country: None (occurrence: None)
  Receive Date: 20090702
  Receipt Date: 20090622
  Transmission Date: 20100115
  Serious: Yes (Hospitalization, Disabling)
  Sender: FDA-Public Use
  Company Number: 2009AL004216

PATIENT
  Age: 58 Year
  Sex: Male

DRUGS (5)
  1. BACLOFEN [Suspect]
     Indication: MULTIPLE SCLEROSIS
     Dosage: 10 MG; TID; PO
     Route: 048
     Dates: start: 20010622, end: 20060812
  2. SATIVEX [Concomitant]
  3. ACETAMINOPHEN W/ CODEINE [Concomitant]
  4. RISEDRONATE SODIUM [Concomitant]
  5. ADCAL [Concomitant]

REACTIONS (3)
  - ACUTE MYOCARDIAL INFARCTION [None]
  - DRUG INTOLERANCE [None]
  - HYPOTENSION [None]
